FAERS Safety Report 6443327-4 (Version None)
Quarter: 2009Q4

REPORT INFORMATION
  Report Type: 
  Country: None (occurrence: None)
  Receive Date: 20091112
  Receipt Date: 20091110
  Transmission Date: 20100525
  Serious: Yes (Disabling)
  Sender: FDA-Public Use
  Company Number: ADR47152009

PATIENT
  Age: 81 Year
  Sex: Female

DRUGS (8)
  1. SIMVASTATIN [Suspect]
     Indication: BLOOD CHOLESTEROL INCREASED
     Dosage: 10MG, ORAL
     Route: 048
     Dates: start: 20060216, end: 20070116
  2. BECLOMETHASONE DIPROPIONATE [Concomitant]
  3. BENDROFLUMETHIAZIDE [Concomitant]
  4. CANDESARTAN CILEXTIL [Concomitant]
  5. CILEXETIL [Concomitant]
  6. LACTULOSE [Concomitant]
  7. MOVELAT [Concomitant]
  8. ALBUTEROL [Concomitant]

REACTIONS (1)
  - TENDONITIS [None]
